FAERS Safety Report 7315876 (Version 2)
Quarter: 2015Q4

REPORT INFORMATION
  Report Type: Spontaneous
  Country: US (occurrence: US)
  Receive Date: 20100311
  Receipt Date: 20151102
  Transmission Date: 20160305
  Serious: No
  Sender: FDA-Public Use
  Company Number: US-BIOGENIDEC-2009BI025329

PATIENT
  Age: 41 Year
  Sex: Female

DRUGS (2)
  1. IVIG [Concomitant]
     Active Substance: HUMAN IMMUNOGLOBULIN G
     Dates: start: 2002
  2. AVONEX [Suspect]
     Active Substance: INTERFERON BETA-1A
     Indication: MULTIPLE SCLEROSIS
     Route: 030
     Dates: start: 20020331, end: 20090820

REACTIONS (4)
  - Urticaria [Not Recovered/Not Resolved]
  - Hypersensitivity [Recovered/Resolved]
  - Drug interaction [Recovered/Resolved]
  - Influenza like illness [Recovered/Resolved]

NARRATIVE: CASE EVENT DATE: 20020331
